FAERS Safety Report 12180460 (Version 1)
Quarter: 2016Q1

REPORT INFORMATION
  Report Type: Spontaneous
  Country: US (occurrence: None)
  Receive Date: 20160314
  Receipt Date: 20160314
  Transmission Date: 20160526
  Serious: Yes (Hospitalization, Disabling)
  Sender: FDA-Public Use
  Company Number: None

PATIENT
  Age: 79 Year
  Sex: Female
  Weight: 83.92 kg

DRUGS (7)
  1. VITIMAN D [Concomitant]
  2. LEVOTHYROXINE. [Concomitant]
     Active Substance: LEVOTHYROXINE
  3. PACEMAKER [Concomitant]
  4. THIOTHIXENE HCL [Suspect]
     Active Substance: THIOTHIXENE HYDROCHLORIDE
     Indication: BIPOLAR DISORDER
     Route: 048
     Dates: start: 2012, end: 2014
  5. GABAPENTIN. [Suspect]
     Active Substance: GABAPENTIN
     Indication: ANXIETY
     Route: 048
     Dates: start: 201508
  6. LITHIUM. [Concomitant]
     Active Substance: LITHIUM
  7. ANASTROZOLE. [Concomitant]
     Active Substance: ANASTROZOLE

REACTIONS (8)
  - Product substitution issue [None]
  - Asthma [None]
  - Tooth fracture [None]
  - Parkinsonism [None]
  - Tongue disorder [None]
  - Oral herpes [None]
  - Fall [None]
  - Peripheral swelling [None]

NARRATIVE: CASE EVENT DATE: 201407
